FAERS Safety Report 9541849 (Version 2)
Quarter: 2013Q3

REPORT INFORMATION
  Report Type: Spontaneous
  Country: GB (occurrence: GB)
  Receive Date: 20130923
  Receipt Date: 20130923
  Transmission Date: 20140515
  Serious: Yes (Hospitalization, Other)
  Sender: FDA-Public Use
  Company Number: PHFR2013GB004412

PATIENT
  Age: 59 Year
  Sex: Male

DRUGS (11)
  1. CLOZARIL [Suspect]
     Indication: SCHIZOPHRENIA, PARANOID TYPE
     Dosage: 700 MG, UNK
     Route: 048
     Dates: start: 20030424
  2. CLOZARIL [Suspect]
     Dosage: 450 MG, QD
  3. CLOZARIL [Suspect]
     Dosage: 300 MG, QD
  4. SPIRONOLACTONE [Concomitant]
     Dosage: 50 MG, UNK
     Route: 048
  5. ZOPICLONE [Concomitant]
     Dosage: 7.5 MG, UNK
     Route: 048
  6. CHLORPROMAZINE [Concomitant]
     Indication: SCHIZOPHRENIA
     Dosage: 150 MG, UNK
     Route: 048
  7. LISINOPRIL [Concomitant]
     Dosage: 20 MG, UNK
     Route: 048
  8. PARACETAMOL [Concomitant]
     Dosage: 4 MG, UNK
     Route: 048
  9. MOVICOL [Concomitant]
     Dosage: 2 DF, SACHETS
     Route: 048
  10. PROCYCLIDINE [Concomitant]
     Indication: EXTRAPYRAMIDAL DISORDER
     Dosage: 10 MG, UNK
     Route: 048
  11. NIFEDIPINE [Concomitant]
     Dosage: 20 MG, UNK
     Route: 048

REACTIONS (6)
  - Fall [Recovered/Resolved]
  - Grand mal convulsion [Recovered/Resolved]
  - Renal failure acute [Recovering/Resolving]
  - Renal impairment [Recovered/Resolved]
  - Pyrexia [Unknown]
  - Essential hypertension [Not Recovered/Not Resolved]
